FAERS Safety Report 23014869 (Version 2)
Quarter: 2024Q1

REPORT INFORMATION
  Report Type: Spontaneous
  Country: JP (occurrence: JP)
  Receive Date: 20231002
  Receipt Date: 20240226
  Transmission Date: 20240410
  Serious: Yes (Hospitalization)
  Sender: FDA-Public Use
  Company Number: JP-NShinyaku-EVA202306254ZZLILLY

PATIENT
  Age: 75 Year
  Sex: Male

DRUGS (23)
  1. TADALAFIL [Suspect]
     Active Substance: TADALAFIL
     Indication: Pulmonary arterial hypertension
     Dosage: 40 MG, DAILY
     Route: 048
     Dates: start: 20220122, end: 20220303
  2. TADALAFIL [Suspect]
     Active Substance: TADALAFIL
     Dosage: 10 MG, DAILY
     Route: 048
     Dates: start: 20220304
  3. UPTRAVI [Suspect]
     Active Substance: SELEXIPAG
     Indication: Pulmonary arterial hypertension
     Dosage: 0.8 MG, DAILY
     Route: 048
     Dates: start: 20210705
  4. UPTRAVI [Suspect]
     Active Substance: SELEXIPAG
     Dosage: 0.4 MG, DAILY
     Route: 048
     Dates: start: 20210312, end: 20210704
  5. OPSUMIT [Concomitant]
     Active Substance: MACITENTAN
     Indication: Pulmonary arterial hypertension
     Dosage: 10 MG, DAILY
     Route: 048
     Dates: start: 20210208
  6. OPSUMIT [Concomitant]
     Active Substance: MACITENTAN
     Dosage: 1.25 MG, DAILY
     Route: 048
     Dates: start: 20201218, end: 20201218
  7. OPSUMIT [Concomitant]
     Active Substance: MACITENTAN
     Dosage: 2.5 MG, DAILY
     Route: 048
     Dates: start: 20201219, end: 20210114
  8. OPSUMIT [Concomitant]
     Active Substance: MACITENTAN
     Dosage: 5 MG, DAILY
     Route: 048
     Dates: start: 20210115, end: 20210207
  9. NEXIUM [Concomitant]
     Active Substance: ESOMEPRAZOLE MAGNESIUM
     Indication: Product used for unknown indication
     Dosage: 20 MG, DAILY
     Route: 048
     Dates: start: 20200316, end: 20221209
  10. BENIDIPINE HYDROCHLORIDE [Concomitant]
     Active Substance: BENIDIPINE HYDROCHLORIDE
     Indication: Product used for unknown indication
     Dosage: 8 MG, DAILY
     Route: 048
     Dates: start: 20200316, end: 20221209
  11. ESAXERENONE [Concomitant]
     Active Substance: ESAXERENONE
     Indication: Product used for unknown indication
     Dosage: 1.25 MG, DAILY
     Route: 048
     Dates: start: 20201219, end: 20210207
  12. ESAXERENONE [Concomitant]
     Active Substance: ESAXERENONE
     Dosage: 2.5 MG, DAILY
     Route: 048
     Dates: start: 20210208, end: 20221209
  13. FUROSEMIDE [Concomitant]
     Active Substance: FUROSEMIDE
     Indication: Product used for unknown indication
     Dosage: 10 MG, DAILY
     Route: 048
     Dates: start: 20220122, end: 20220309
  14. FUROSEMIDE [Concomitant]
     Active Substance: FUROSEMIDE
     Dosage: 20 MG, DAILY
     Route: 042
     Dates: start: 20220304, end: 20220309
  15. SOLU-MEDROL [Concomitant]
     Active Substance: METHYLPREDNISOLONE SODIUM SUCCINATE
     Indication: Product used for unknown indication
     Dosage: 1000 MG, UNKNOWN
     Route: 042
     Dates: start: 20220304
  16. LEVOFLOXACIN HEMIHYDRATE [Concomitant]
     Active Substance: LEVOFLOXACIN
     Indication: Product used for unknown indication
     Dosage: 500 MG, DAILY
     Route: 042
     Dates: start: 20220304
  17. MEROPENEM [Concomitant]
     Active Substance: MEROPENEM
     Indication: Product used for unknown indication
     Dosage: 2 G, DAILY
     Route: 041
     Dates: start: 20220304
  18. PREDNISOLONE [Concomitant]
     Active Substance: PREDNISOLONE
     Indication: Product used for unknown indication
     Dosage: 65 MG, DAILY
     Route: 048
     Dates: start: 20220308, end: 20220403
  19. PREDNISOLONE [Concomitant]
     Active Substance: PREDNISOLONE
     Dosage: 8 MG, DAILY
     Route: 048
     Dates: start: 20220404, end: 20230713
  20. PREDNISOLONE [Concomitant]
     Active Substance: PREDNISOLONE
     Dosage: 3 MG, DAILY
     Route: 048
     Dates: start: 20230714
  21. LEVOFLOXACIN [Concomitant]
     Active Substance: LEVOFLOXACIN
     Indication: Product used for unknown indication
     Dosage: 250 MG, DAILY
     Route: 048
     Dates: start: 20220308, end: 20220309
  22. NINTEDANIB [Concomitant]
     Active Substance: NINTEDANIB
     Indication: Product used for unknown indication
     Dosage: 300 MG, DAILY
     Route: 048
     Dates: start: 20220308, end: 20230714
  23. NINTEDANIB [Concomitant]
     Active Substance: NINTEDANIB
     Dosage: 100 MG, DAILY
     Route: 048
     Dates: start: 20230915

REACTIONS (2)
  - Interstitial lung disease [Unknown]
  - Dyspnoea exertional [Unknown]

NARRATIVE: CASE EVENT DATE: 20220304
